FAERS Safety Report 8314661-8 (Version None)
Quarter: 2012Q2

REPORT INFORMATION
  Report Type: 
  Country: None (occurrence: None)
  Receive Date: 20120426
  Receipt Date: 20120416
  Transmission Date: 20120825
  Serious: Yes (Hospitalization)
  Sender: FDA-Public Use
  Company Number: HR-ELI_LILLY_AND_COMPANY-HR201204005917

PATIENT
  Age: 65 Year
  Sex: Male

DRUGS (1)
  1. OLANZAPINE [Suspect]
     Indication: SCHIZOPHRENIA, PARANOID TYPE
     Dosage: 405 MG, UNK
     Route: 030
     Dates: start: 20120305

REACTIONS (4)
  - IRRITABILITY [None]
  - ASTHENIA [None]
  - MUSCULOSKELETAL STIFFNESS [None]
  - SOMNOLENCE [None]
